FAERS Safety Report 8130972-3 (Version None)
Quarter: 2012Q1

REPORT INFORMATION
  Report Type: 
  Country: None (occurrence: None)
  Receive Date: 20120213
  Receipt Date: 20120209
  Transmission Date: 20120608
  Serious: No
  Sender: FDA-Public Use
  Company Number: US-PFIZER INC-2012036240

PATIENT
  Sex: Male
  Weight: 73.469 kg

DRUGS (5)
  1. LIPITOR [Suspect]
     Indication: BLOOD CHOLESTEROL INCREASED
     Dosage: 10 MG, 1X/DAY
     Route: 048
  2. HYDROCHLOROTHIAZIDE [Concomitant]
     Dosage: 12.5 MG, UNK
  3. ACIPHEX [Concomitant]
     Indication: HYPERCHLORHYDRIA
     Dosage: UNK
  4. ACIPHEX [Concomitant]
     Indication: ABDOMINAL DISCOMFORT
  5. VITAMIN D [Concomitant]
     Dosage: UNK

REACTIONS (2)
  - ABDOMINAL DISCOMFORT [None]
  - FLATULENCE [None]
